FAERS Safety Report 4633833-7 (Version None)
Quarter: 2005Q2

REPORT INFORMATION
  Report Type: 
  Country: None (occurrence: None)
  Receive Date: 20050413
  Receipt Date: 20050405
  Transmission Date: 20051028
  Serious: Yes (Hospitalization)
  Sender: FDA-Public Use
  Company Number: 200512770US

PATIENT
  Sex: Female

DRUGS (8)
  1. ARAVA [Suspect]
     Dates: end: 20030322
  2. TRACLEER [Suspect]
     Indication: PULMONARY HYPERTENSION
     Dates: start: 20030113, end: 20030501
  3. PREDNISONE [Concomitant]
     Dosage: DOSE: UNK
  4. PREVACID [Concomitant]
     Dosage: DOSE: UNK
  5. ACCUPRIL [Concomitant]
     Dosage: DOSE: UNK
  6. COUMADIN [Concomitant]
     Dosage: DOSE: UNK
  7. ALLEGRA [Concomitant]
     Dosage: DOSE: UNK
  8. VITAMINS [Concomitant]
     Dosage: DOSE: UNK

REACTIONS (4)
  - ALANINE AMINOTRANSFERASE INCREASED [None]
  - ASPARTATE AMINOTRANSFERASE INCREASED [None]
  - DYSPNOEA [None]
  - LIVER FUNCTION TEST ABNORMAL [None]
